FAERS Safety Report 15351926 (Version 1)
Quarter: 2018Q3

REPORT INFORMATION
  Report Type: Spontaneous
  Country: US (occurrence: US)
  Receive Date: 20180905
  Receipt Date: 20180905
  Transmission Date: 20181010
  Serious: No
  Sender: FDA-Public Use
  Company Number: US-IMPAX LABORATORIES, INC-2017-IPXL-03286

PATIENT
  Sex: Female

DRUGS (2)
  1. LAMOTRIGINE ODT [Suspect]
     Active Substance: LAMOTRIGINE
     Indication: OFF LABEL USE
  2. LAMOTRIGINE ODT [Suspect]
     Active Substance: LAMOTRIGINE
     Indication: DEPRESSION
     Dosage: 150 MG, DAILY
     Route: 048

REACTIONS (8)
  - Disturbance in attention [Unknown]
  - Adverse event [Unknown]
  - Headache [Unknown]
  - Off label use [Unknown]
  - Allergic reaction to excipient [Unknown]
  - Muscle twitching [Unknown]
  - Poor quality sleep [Unknown]
  - Nausea [Unknown]
